FAERS Safety Report 8548916-9 (Version None)
Quarter: 2012Q3

REPORT INFORMATION
  Report Type: 
  Country: None (occurrence: None)
  Receive Date: 20120730
  Receipt Date: 20120726
  Transmission Date: 20120928
  Serious: Yes (Other)
  Sender: FDA-Public Use
  Company Number: PHHY2012AU045852

PATIENT
  Sex: Female

DRUGS (19)
  1. ZOLEDRONOC ACID [Suspect]
     Dosage: 5 MG, UNK
     Route: 042
     Dates: start: 20091214
  2. HYDROCORTISONE ACETATE [Concomitant]
     Dosage: 30 G APPLY BID
  3. GENTEAL LUBRICANT [Concomitant]
  4. ARIMIDEX [Concomitant]
     Dates: start: 20080401
  5. ZOLEDRONOC ACID [Suspect]
     Dosage: 5 MG, UNK
     Route: 042
     Dates: start: 20081218
  6. MAXOLON [Concomitant]
  7. DIFLUCAN [Concomitant]
  8. DIABEX S.R. [Concomitant]
  9. RANITIDINE [Concomitant]
  10. CALTRATE 600 + VITAMIN D [Concomitant]
  11. CRESTOR [Concomitant]
  12. ZINCAPS [Concomitant]
  13. LANTUS [Concomitant]
  14. MACU-VISION [Concomitant]
  15. ZOLEDRONOC ACID [Suspect]
     Dosage: 5 MG, UNK
     Route: 042
     Dates: start: 20110429
  16. ACETAMINOPHEN [Concomitant]
  17. OSTELIN [Concomitant]
  18. NILSTAT [Concomitant]
  19. HIPREX [Concomitant]

REACTIONS (3)
  - JAUNDICE CHOLESTATIC [None]
  - ADENOCARCINOMA PANCREAS [None]
  - ABDOMINAL NEOPLASM [None]
